FAERS Safety Report 5354826-0 (Version None)
Quarter: 2007Q2

REPORT INFORMATION
  Report Type: 
  Country: None (occurrence: None)
  Receive Date: 20070611
  Receipt Date: 20060604
  Transmission Date: 20071010
  Serious: Yes (Life-Threatening, Hospitalization)
  Sender: FDA-Public Use
  Company Number: TPA2007A01142

PATIENT
  Age: 49 Year
  Sex: Female

DRUGS (1)
  1. ACTOS [Suspect]
     Dosage: UNK., UNKNOWN, PER ORAL
     Route: 048

REACTIONS (2)
  - HEPATIC FAILURE [None]
  - LIVER TRANSPLANT [None]
